FAERS Safety Report 7963442-3 (Version None)
Quarter: 2011Q4

REPORT INFORMATION
  Report Type: 
  Country: None (occurrence: None)
  Receive Date: 20111208
  Receipt Date: 20111128
  Transmission Date: 20120403
  Serious: No
  Sender: FDA-Public Use
  Company Number: US-BAYER-2011-114422

PATIENT
  Sex: Male

DRUGS (5)
  1. LEVITRA [Suspect]
     Indication: ERECTILE DYSFUNCTION
     Dosage: 1/2 OF 20MG, ONCE PER WEEK
     Dates: start: 20100101, end: 20111101
  2. CHOLESTYRAMINE [Concomitant]
  3. HYDROCHLOROTHIAZIDE [Concomitant]
  4. METOPROLOL TARTRATE [Concomitant]
  5. PRAVACHOL [Concomitant]

REACTIONS (2)
  - DRUG INEFFECTIVE [None]
  - FLUSHING [None]
